FAERS Safety Report 26058857 (Version 1)
Quarter: 2025Q4

REPORT INFORMATION
  Report Type: Spontaneous
  Country: EU (occurrence: EU)
  Receive Date: 20251118
  Receipt Date: 20251118
  Transmission Date: 20260117
  Serious: Yes (Other)
  Sender: BAYER HEALTHCARE PHARMACEUTICALS INC.
  Company Number: None

PATIENT
  Age: 46 Year
  Sex: Female
  Weight: 67.5 kg

DRUGS (4)
  1. GADOBUTROL [Suspect]
     Active Substance: GADOBUTROL
     Indication: Magnetic resonance imaging heart
     Dosage: UNK UNK, ONCE
     Route: 042
     Dates: start: 20251103, end: 20251103
  2. SACUBITRIL\VALSARTAN [Concomitant]
     Active Substance: SACUBITRIL\VALSARTAN
     Dosage: UNK
     Route: 048
  3. NEOTIGASON [Concomitant]
     Active Substance: ACITRETIN
     Route: 048
  4. PLAQUINOL [Concomitant]
     Active Substance: HYDROXYCHLOROQUINE SULFATE
     Dosage: UNK
     Route: 048

REACTIONS (1)
  - Larynx irritation [Recovered/Resolved]

NARRATIVE: CASE EVENT DATE: 20251103
